FAERS Safety Report 25817968 (Version 1)
Quarter: 2025Q3

REPORT INFORMATION
  Report Type: Spontaneous
  Country: US (occurrence: US)
  Receive Date: 20250918
  Receipt Date: 20250918
  Transmission Date: 20251020
  Serious: No
  Sender: GLAND PHARMA LTD
  Company Number: US-GLANDPHARMA-US-2025GLNSPO01799

PATIENT

DRUGS (1)
  1. OXALIPLATIN [Suspect]
     Active Substance: OXALIPLATIN
     Indication: Neoplasm malignant
     Route: 065

REACTIONS (4)
  - Dyspnoea [Recovered/Resolved]
  - Cough [Recovered/Resolved]
  - Weight decreased [Unknown]
  - Alopecia [Unknown]
